FAERS Safety Report 4762533-8 (Version None)
Quarter: 2005Q3

REPORT INFORMATION
  Report Type: 
  Country: None (occurrence: None)
  Receive Date: 20050902
  Receipt Date: 20050509
  Transmission Date: 20060218
  Serious: Yes (Other)
  Sender: FDA-Public Use
  Company Number: 2005S1001648

PATIENT
  Age: 51 Year
  Sex: Female

DRUGS (14)
  1. FENTANYL [Suspect]
     Indication: BACK PAIN
     Dosage: 100 MCG/HR;X1;TDER
     Dates: start: 20050326, end: 20050327
  2. FENTANYL [Suspect]
     Indication: PAIN IN EXTREMITY
     Dosage: 100 MCG/HR;X1;TDER
     Dates: start: 20050326, end: 20050327
  3. FENTANYL [Suspect]
     Indication: SPINAL COLUMN STENOSIS
     Dosage: 100 MCG/HR;X1;TDER
     Dates: start: 20050326, end: 20050327
  4. SELEGILINE HYDROCHLORIDE [Concomitant]
  5. METFORMIN [Concomitant]
  6. GLIPIZIDE [Concomitant]
  7. SIMVASTATIN [Concomitant]
  8. GABAPENTIN [Concomitant]
  9. FISH OIL [Concomitant]
  10. ERGOCALCIFEROL/ASCORBIC ACID/FOLIC ACID/THIAMINE [Concomitant]
  11. HYDROCHLORIDE/RETINOL/RIBOFLAVIN/NICOTINAMIDE [Concomitant]
  12. ASPIRIN [Concomitant]
  13. ASCORBIC ACID [Concomitant]
  14. TOCOPHEROL CONCENTRATE CAP [Concomitant]

REACTIONS (4)
  - DIZZINESS [None]
  - FEELING DRUNK [None]
  - PRURITUS [None]
  - SOMNOLENCE [None]
